FAERS Safety Report 7270378-2 (Version None)
Quarter: 2011Q1

REPORT INFORMATION
  Report Type: 
  Country: None (occurrence: None)
  Receive Date: 20110202
  Receipt Date: 20101228
  Transmission Date: 20110831
  Serious: Yes (Other)
  Sender: FDA-Public Use
  Company Number: US-BAYER-200943227NA

PATIENT
  Sex: Female
  Weight: 54.422 kg

DRUGS (6)
  1. YASMIN [Suspect]
     Dosage: UNK
     Dates: start: 20050101, end: 20070101
  2. AMITRIPTYLINE HCL [Concomitant]
     Dosage: UNK
     Dates: start: 20050101
  3. NSAID'S [Concomitant]
  4. YAZ [Suspect]
     Indication: PRODUCT USED FOR UNKNOWN INDICATION
     Dosage: UNK
     Dates: start: 20050101, end: 20070101
  5. LEVOXYL [Concomitant]
     Indication: HYPOTHYROIDISM
     Dosage: 137 ?G, UNK
     Dates: start: 19950101
  6. CARAFATE [Concomitant]

REACTIONS (3)
  - CHOLELITHIASIS [None]
  - ABDOMINAL PAIN [None]
  - METRORRHAGIA [None]
